FAERS Safety Report 18886460 (Version 1)
Quarter: 2021Q1

REPORT INFORMATION
  Report Type: Spontaneous
  Country: CN (occurrence: CN)
  Receive Date: 20210212
  Receipt Date: 20210212
  Transmission Date: 20210420
  Serious: Yes (Other)
  Sender: FDA-Public Use
  Company Number: CN-PFIZER INC-2021106931

PATIENT
  Age: 71 Year
  Sex: Female
  Weight: 67 kg

DRUGS (1)
  1. SOLU?MEDROL [Suspect]
     Active Substance: METHYLPREDNISOLONE SODIUM SUCCINATE
     Indication: DRUG THERAPY
     Dosage: 40 MG, 1X/DAY
     Route: 041
     Dates: start: 20210107, end: 20210107

REACTIONS (3)
  - Cough [Recovering/Resolving]
  - Tachypnoea [Recovering/Resolving]
  - Chills [Recovering/Resolving]

NARRATIVE: CASE EVENT DATE: 20210107
